FAERS Safety Report 5578930-7 (Version None)
Quarter: 2008Q1

REPORT INFORMATION
  Report Type: 
  Country: None (occurrence: None)
  Receive Date: 20080102
  Receipt Date: 20071221
  Transmission Date: 20080703
  Serious: Yes (Other)
  Sender: FDA-Public Use
  Company Number: US-PURDUE-USA_2007_0030884

PATIENT
  Age: 41 Year
  Sex: Female
  Weight: 68 kg

DRUGS (4)
  1. DILAUDID TABLET [Suspect]
     Indication: PAIN
     Dosage: 8 MG, BID
     Dates: start: 20071001
  2. LYRICA [Suspect]
     Indication: TRIGEMINAL NEURALGIA
     Dosage: 200 MG, SEE TEXT
     Route: 048
     Dates: start: 20071001
  3. LEXAPRO [Concomitant]
     Dosage: 10 MG, DAILY
  4. KLONOPIN [Concomitant]
     Dosage: 1 MG, UNK

REACTIONS (2)
  - PAIN [None]
  - WEIGHT INCREASED [None]
